FAERS Safety Report 5115873-7 (Version None)
Quarter: 2006Q3

REPORT INFORMATION
  Report Type: 
  Country: None (occurrence: None)
  Receive Date: 20060926
  Receipt Date: 20060926
  Transmission Date: 20061208
  Serious: Yes (Hospitalization)
  Sender: FDA-Public Use
  Company Number: None

PATIENT
  Age: 63 Year
  Sex: Female

DRUGS (2)
  1. PHOSPHOSODA GINGER LEMON [Suspect]
     Indication: INTESTINAL OPERATION
     Dosage: SEE IMAGE
     Route: 048
     Dates: start: 20050201
  2. PHOSPHOSODA GINGER LEMON [Suspect]
     Indication: INTESTINAL OPERATION
     Dosage: SEE IMAGE
     Route: 048
     Dates: start: 20050201

REACTIONS (4)
  - ANAEMIA [None]
  - BLOOD PRESSURE DECREASED [None]
  - RENAL FAILURE ACUTE [None]
  - RENAL FAILURE CHRONIC [None]
